FAERS Safety Report 5569907-6 (Version None)
Quarter: 2007Q4

REPORT INFORMATION
  Report Type: 
  Country: None (occurrence: None)
  Receive Date: 20071218
  Receipt Date: 20071204
  Transmission Date: 20080405
  Serious: Yes (Other)
  Sender: FDA-Public Use
  Company Number: SPV1-2007-05112

PATIENT
  Age: 18 Year
  Sex: Male

DRUGS (2)
  1. MEZAVANT XL (MESALAZINE,MESALAMINE) TABLET [Suspect]
     Indication: COLITIS ULCERATIVE
     Dosage: ORAL
     Route: 048
  2. AZATHIOPRINE [Suspect]
     Indication: COLITIS ULCERATIVE

REACTIONS (3)
  - DIARRHOEA [None]
  - EOSINOPHILIC PNEUMONIA [None]
  - PULMONARY TOXICITY [None]
